FAERS Safety Report 8484906-2 (Version None)
Quarter: 2012Q3

REPORT INFORMATION
  Report Type: 
  Country: None (occurrence: None)
  Receive Date: 20120703
  Receipt Date: 20120625
  Transmission Date: 20120928
  Serious: Yes (Other)
  Sender: FDA-Public Use
  Company Number: US-ASTELLAS-2012US005280

PATIENT
  Sex: Female
  Weight: 50 kg

DRUGS (6)
  1. ALENDRONATE SODIUM [Concomitant]
     Indication: PRODUCT USED FOR UNKNOWN INDICATION
     Dosage: UNK
     Route: 065
  2. ERLOTINIB HYDROCHLORIDE [Suspect]
     Dosage: 75 MG, UID/QD
     Route: 048
     Dates: end: 20120501
  3. ERLOTINIB HYDROCHLORIDE [Suspect]
     Indication: LUNG SQUAMOUS CELL CARCINOMA STAGE III
     Dosage: 150 MG, UID/QD
     Route: 048
     Dates: start: 20120210
  4. ARIMIDEX [Concomitant]
     Indication: BREAST CANCER FEMALE
     Dosage: UNK
     Route: 065
  5. MS CONTIN [Suspect]
     Indication: PAIN
     Dosage: 30 MG, BID
     Route: 048
  6. DAILY MULTIVITAMIN [Concomitant]
     Indication: PRODUCT USED FOR UNKNOWN INDICATION
     Dosage: UNK
     Route: 065

REACTIONS (4)
  - DIARRHOEA [None]
  - DRUG INTOLERANCE [None]
  - HALLUCINATION [None]
  - BREAST MASS [None]
